FAERS Safety Report 7488896-0 (Version None)
Quarter: 2011Q2

REPORT INFORMATION
  Report Type: 
  Country: None (occurrence: None)
  Receive Date: 20110511
  Receipt Date: 20110426
  Transmission Date: 20111010
  Serious: Yes (Death, Life-Threatening, Hospitalization)
  Sender: FDA-Public Use
  Company Number: 2011S1000032

PATIENT
  Age: 58 Year
  Sex: Male
  Weight: 70.7611 kg

DRUGS (13)
  1. HYDROCHLOROTHIAZIDE [Concomitant]
  2. CELEBREX [Concomitant]
  3. SOLU-MEDROL [Concomitant]
  4. COLCHICINE [Concomitant]
  5. COZAAR [Concomitant]
  6. PLAVIX [Concomitant]
  7. PREINISONE [Concomitant]
  8. ACETAMINOPHEN [Concomitant]
  9. BENADRYL [Concomitant]
  10. OMEPRAZOLE [Concomitant]
  11. KRYSTEXXA [Suspect]
     Indication: GOUT
     Dosage: 8 MG;X1; IV
     Route: 042
     Dates: start: 20110412, end: 20110412
  12. ALLOPURINOL [Concomitant]
  13. ACTOS [Concomitant]

REACTIONS (11)
  - BLOOD POTASSIUM INCREASED [None]
  - RESPIRATORY FAILURE [None]
  - HYPERTENSION [None]
  - LACTIC ACIDOSIS [None]
  - STAPHYLOCOCCAL INFECTION [None]
  - SEPTIC SHOCK [None]
  - GOUT [None]
  - OEDEMA PERIPHERAL [None]
  - STUPOR [None]
  - BLOOD CREATININE INCREASED [None]
  - CULTURE POSITIVE [None]
